FAERS Safety Report 19751321 (Version 3)
Quarter: 2022Q3

REPORT INFORMATION
  Report Type: Report from Study
  Country: US (occurrence: US)
  Receive Date: 20210826
  Receipt Date: 20220811
  Transmission Date: 20221027
  Serious: No
  Sender: FDA-Public Use
  Company Number: US-ACADIA PHARMACEUTICALS INC.-ACA-2021-PIM-002857

PATIENT
  Age: 68 Year
  Sex: Male
  Weight: 98 kg

DRUGS (7)
  1. NUPLAZID [Suspect]
     Active Substance: PIMAVANSERIN TARTRATE
     Indication: Parkinson^s disease psychosis
     Dosage: 34 MILLIGRAM, QD
     Route: 065
  2. NUPLAZID [Suspect]
     Active Substance: PIMAVANSERIN TARTRATE
     Indication: Hallucination
     Dosage: 34 MILLIGRAM, QD
     Route: 048
  3. NUPLAZID [Suspect]
     Active Substance: PIMAVANSERIN TARTRATE
     Indication: Delusion
     Dosage: 34 MILLIGRAM, QD
     Route: 065
     Dates: end: 20220718
  4. NEUPRO [Concomitant]
     Active Substance: ROTIGOTINE
  5. DONEPEZIL [Concomitant]
     Active Substance: DONEPEZIL
  6. MEMANTINE [Concomitant]
     Active Substance: MEMANTINE
     Dosage: 10 MILLIGRAM
  7. MELATONIN [Concomitant]
     Active Substance: MELATONIN

REACTIONS (11)
  - Paranoia [Recovered/Resolved]
  - Anxiety [Recovered/Resolved]
  - Tachycardia [Recovered/Resolved]
  - Asthenia [Recovering/Resolving]
  - Muscular weakness [Unknown]
  - Dementia [Unknown]
  - Delusion [Unknown]
  - Drooling [Unknown]
  - Hallucination [Recovering/Resolving]
  - Hallucination [Recovered/Resolved]
  - Gait disturbance [Not Recovered/Not Resolved]

NARRATIVE: CASE EVENT DATE: 20220601
